FAERS Safety Report 21966652 (Version 3)
Quarter: 2023Q2

REPORT INFORMATION
  Report Type: Spontaneous
  Country: GB (occurrence: GB)
  Receive Date: 20230208
  Receipt Date: 20230410
  Transmission Date: 20230722
  Serious: Yes (Other)
  Sender: FDA-Public Use
  Company Number: GB-ORGANON-O2302GBR000379

PATIENT
  Age: 18 Year
  Sex: Female
  Weight: 58 kg

DRUGS (3)
  1. NEXPLANON [Suspect]
     Active Substance: ETONOGESTREL
     Indication: Contraception
     Dosage: 1 IMPLANT OF 68MG, REPEAT
     Route: 059
     Dates: start: 20220526, end: 20230202
  2. SERTRALINE [Concomitant]
     Active Substance: SERTRALINE HYDROCHLORIDE
     Indication: Antidepressant therapy
     Dosage: 50 MILLIGRAM
  3. SERTRALINE [Concomitant]
     Active Substance: SERTRALINE HYDROCHLORIDE
     Dosage: INCREASED TO 100 MILLIGRAM

REACTIONS (6)
  - Pregnancy with implant contraceptive [Not Recovered/Not Resolved]
  - Stress [Unknown]
  - Abdominal symptom [Unknown]
  - Drug ineffective [Unknown]
  - Unintended pregnancy [Not Recovered/Not Resolved]
  - Anxiety [Unknown]

NARRATIVE: CASE EVENT DATE: 20220101
